FAERS Safety Report 6194120-1 (Version None)
Quarter: 2009Q2

REPORT INFORMATION
  Report Type: 
  Country: None (occurrence: None)
  Receive Date: 20090518
  Receipt Date: 20090421
  Transmission Date: 20091009
  Serious: Yes (Other)
  Sender: FDA-Public Use
  Company Number: PHHY2009JP18857

PATIENT
  Age: 88 Year
  Sex: Female

DRUGS (1)
  1. FAMVIR [Suspect]
     Dosage: 500 MG, QD
     Route: 048
     Dates: start: 20090402, end: 20090404

REACTIONS (1)
  - URINARY RETENTION [None]
